FAERS Safety Report 7757346-9 (Version None)
Quarter: 2011Q3

REPORT INFORMATION
  Report Type: 
  Country: None (occurrence: None)
  Receive Date: 20110916
  Receipt Date: 20110908
  Transmission Date: 20111222
  Serious: Yes (Hospitalization, Other)
  Sender: FDA-Public Use
  Company Number: PHHY2011HK79881

PATIENT
  Age: 21 Year
  Sex: Female

DRUGS (1)
  1. METHADONE HCL [Suspect]
     Dosage: 800 MG, UNK
     Route: 048

REACTIONS (10)
  - RESPIRATORY DEPRESSION [None]
  - HYPOGLYCAEMIA [None]
  - ACCIDENTAL OVERDOSE [None]
  - ELECTROCARDIOGRAM QT PROLONGED [None]
  - HYPOTENSION [None]
  - DEPRESSED LEVEL OF CONSCIOUSNESS [None]
  - SINUS TACHYCARDIA [None]
  - PNEUMONIA [None]
  - VENTRICULAR EXTRASYSTOLES [None]
  - COMA [None]
